FAERS Safety Report 22086562 (Version 2)
Quarter: 2023Q1

REPORT INFORMATION
  Report Type: Spontaneous
  Country: IT (occurrence: IT)
  Receive Date: 20230312
  Receipt Date: 20230315
  Transmission Date: 20230417
  Serious: Yes (Other)
  Sender: FDA-Public Use
  Company Number: IT-ROCHE-3291168

PATIENT
  Age: 58 Year
  Sex: Male

DRUGS (1)
  1. CEFTRIAXONE [Suspect]
     Active Substance: CEFTRIAXONE
     Indication: Antibiotic prophylaxis
     Dosage: UNK
     Route: 065

REACTIONS (7)
  - Infusion site extravasation [Unknown]
  - Ascites [Unknown]
  - Portal vein thrombosis [Unknown]
  - Portal hypertensive gastropathy [Unknown]
  - Weight increased [Unknown]
  - Yellow skin [Unknown]
  - Tissue discolouration [Unknown]
